FAERS Safety Report 17870928 (Version 2)
Quarter: 2020Q2

REPORT INFORMATION
  Report Type: Report from Study
  Country: CA (occurrence: CA)
  Receive Date: 20200608
  Receipt Date: 20200622
  Transmission Date: 20200714
  Serious: Yes (Hospitalization)
  Sender: FDA-Public Use
  Company Number: CA-OCTA-ONORM01720CA

PATIENT
  Sex: Female

DRUGS (1)
  1. CUTAQUIG [Suspect]
     Active Substance: HUMAN IMMUNOGLOBULIN G
     Indication: IMMUNE SYSTEM DISORDER
     Route: 058
     Dates: start: 20200504, end: 20200518

REACTIONS (2)
  - Pneumonia [Recovering/Resolving]
  - Decubitus ulcer [Unknown]
